FAERS Safety Report 9973130 (Version 2)
Quarter: 2014Q2

REPORT INFORMATION
  Report Type: Spontaneous
  Country: IT (occurrence: IT)
  Receive Date: 20140306
  Receipt Date: 20140512
  Transmission Date: 20141212
  Serious: Yes (Hospitalization)
  Sender: FDA-Public Use
  Company Number: IT-JNJFOC-20140301347

PATIENT
  Age: 18 Year
  Sex: Male

DRUGS (1)
  1. HALDOL [Suspect]
     Indication: ANXIETY
     Route: 048
     Dates: start: 20140201, end: 20140203

REACTIONS (8)
  - Akathisia [Recovered/Resolved]
  - Hypotension [Recovered/Resolved]
  - Opisthotonus [Recovered/Resolved]
  - Tongue oedema [Recovered/Resolved]
  - Wrong technique in drug usage process [Unknown]
  - Off label use [Unknown]
  - Self-medication [Unknown]
  - Drug abuse [Recovered/Resolved]
